FAERS Safety Report 8021214-8 (Version None)
Quarter: 2011Q4

REPORT INFORMATION
  Report Type: 
  Country: None (occurrence: None)
  Receive Date: 20111223
  Receipt Date: 20111215
  Transmission Date: 20120403
  Serious: Yes (Hospitalization, Other)
  Sender: FDA-Public Use
  Company Number: 2011030531

PATIENT
  Sex: Male

DRUGS (2)
  1. CARIMUNE [Suspect]
     Indication: COMBINED IMMUNODEFICIENCY
     Dosage: (15 G 1X/MONTH INTRAVENOUS (NOT OTHERWISE SPECIFIED)), (15 G 1X/MONTH, (1.8/KG/HR) INTRAVENOUS (NOT
     Route: 042
     Dates: start: 20111130
  2. CARIMUNE [Suspect]
     Indication: COMBINED IMMUNODEFICIENCY
     Dosage: (15 G 1X/MONTH INTRAVENOUS (NOT OTHERWISE SPECIFIED)), (15 G 1X/MONTH, (1.8/KG/HR) INTRAVENOUS (NOT
     Route: 042
     Dates: start: 20090101

REACTIONS (6)
  - HEPATITIS B VIRUS TEST POSITIVE [None]
  - HEPATIC ENZYME INCREASED [None]
  - TRANSMISSION OF AN INFECTIOUS AGENT VIA A MEDICINAL PRODUCT [None]
  - ABDOMINAL DISTENSION [None]
  - PYREXIA [None]
  - COAGULOPATHY [None]
